FAERS Safety Report 11628075 (Version 1)
Quarter: 2015Q4

REPORT INFORMATION
  Report Type: Spontaneous
  Country: US (occurrence: None)
  Receive Date: 20151013
  Receipt Date: 20151013
  Transmission Date: 20160304
  Serious: No
  Sender: FDA-Public Use
  Company Number: None

PATIENT
  Sex: Female
  Weight: 79.38 kg

DRUGS (9)
  1. ROCKXICODON [Concomitant]
  2. MORAPHINE [Concomitant]
  3. SIMVASTATIN. [Concomitant]
     Active Substance: SIMVASTATIN
  4. NECK BRACE [Concomitant]
  5. RENIDIDINE [Concomitant]
  6. SOMA [Concomitant]
     Active Substance: CARISOPRODOL
  7. KNEE BRAC [Concomitant]
  8. BRINTELLIX [Suspect]
     Active Substance: VORTIOXETINE HYDROBROMIDE
     Indication: DEPRESSION
     Dosage: TAKEN BY MOUTH
  9. BACK BRACE [Concomitant]

REACTIONS (1)
  - Nightmare [None]
